FAERS Safety Report 7617076-0 (Version None)
Quarter: 2011Q3

REPORT INFORMATION
  Report Type: 
  Country: None (occurrence: None)
  Receive Date: 20110718
  Receipt Date: 20110705
  Transmission Date: 20111222
  Serious: Yes (Other)
  Sender: FDA-Public Use
  Company Number: US-ELI_LILLY_AND_COMPANY-US201106001368

PATIENT
  Sex: Female
  Weight: 59.864 kg

DRUGS (6)
  1. XANAX [Concomitant]
  2. ADVAIR DISKUS 100/50 [Concomitant]
  3. CELEXA [Concomitant]
  4. NEXIUM [Concomitant]
  5. FORTEO [Suspect]
     Indication: OSTEOPOROSIS
     Dosage: UNK, UNKNOWN
     Route: 065
     Dates: start: 20090910, end: 20110614
  6. SPIRIVA [Concomitant]

REACTIONS (4)
  - BREAST HYPERPLASIA [None]
  - BREAST CALCIFICATIONS [None]
  - METASTASES TO LYMPH NODES [None]
  - BREAST CANCER [None]
